FAERS Safety Report 18072177 (Version 1)
Quarter: 2020Q3

REPORT INFORMATION
  Report Type: Spontaneous
  Country: US (occurrence: US)
  Receive Date: 20200725
  Receipt Date: 20200725
  Transmission Date: 20201103
  Serious: Yes (Disabling, Other)
  Sender: FDA-Public Use
  Company Number: None

PATIENT
  Age: 59 Year
  Sex: Female
  Weight: 76.5 kg

DRUGS (6)
  1. ALPRAZOLAM. [Concomitant]
     Active Substance: ALPRAZOLAM
  2. GABEPENTIN [Concomitant]
     Active Substance: GABAPENTIN
  3. FLUTICASONE PROPIONATE NASAL SPRAY [Suspect]
     Active Substance: FLUTICASONE PROPIONATE
     Indication: SINUSITIS
     Dosage: ?          QUANTITY:1 SPRAY(S);?
     Route: 055
  4. FLUTICASONE PROPIONATE NASAL SPRAY [Suspect]
     Active Substance: FLUTICASONE PROPIONATE
     Indication: EAR INFECTION
     Dosage: ?          QUANTITY:1 SPRAY(S);?
     Route: 055
  5. SYNTHROID [Concomitant]
     Active Substance: LEVOTHYROXINE SODIUM
  6. LEVORTYROXIN [Concomitant]

REACTIONS (7)
  - Condition aggravated [None]
  - Product odour abnormal [None]
  - Ageusia [None]
  - Anosmia [None]
  - Recalled product administered [None]
  - Infection [None]
  - Product contamination [None]

NARRATIVE: CASE EVENT DATE: 20171202
